FAERS Safety Report 6903744-2 (Version None)
Quarter: 2010Q3

REPORT INFORMATION
  Report Type: 
  Country: None (occurrence: None)
  Receive Date: 20100804
  Receipt Date: 20081125
  Transmission Date: 20110219
  Serious: Yes (Other)
  Sender: FDA-Public Use
  Company Number: US-PFIZER INC-2008099830

PATIENT
  Sex: Female
  Weight: 101.81 kg

DRUGS (7)
  1. LYRICA [Suspect]
     Indication: ARTHRITIS
     Route: 048
     Dates: start: 20080101, end: 20081124
  2. TRAMADOL HYDROCHLORIDE [Suspect]
     Indication: PAIN
     Dates: end: 20081101
  3. OMEPRAZOLE [Concomitant]
     Indication: ULCER
  4. OMEPRAZOLE [Concomitant]
     Indication: GASTROOESOPHAGEAL REFLUX DISEASE
  5. SEROQUEL [Concomitant]
  6. CETIRIZINE HCL [Concomitant]
     Indication: HYPERSENSITIVITY
  7. SPIRONOLACTONE [Concomitant]
     Indication: HYPERTENSION

REACTIONS (7)
  - EYE DISORDER [None]
  - NAUSEA [None]
  - OCULAR HYPERAEMIA [None]
  - PAIN [None]
  - SWELLING [None]
  - SWELLING FACE [None]
  - WEIGHT INCREASED [None]
